FAERS Safety Report 6384495-2 (Version None)
Quarter: 2009Q4

REPORT INFORMATION
  Report Type: 
  Country: None (occurrence: None)
  Receive Date: 20091001
  Receipt Date: 20090923
  Transmission Date: 20100525
  Serious: Yes (Hospitalization, Other)
  Sender: FDA-Public Use
  Company Number: BR-ABBOTT-09P-020-0599043-00

PATIENT
  Sex: Female
  Weight: 42.5 kg

DRUGS (3)
  1. HUMIRA [Suspect]
     Indication: RHEUMATOID ARTHRITIS
     Route: 058
     Dates: start: 20070901, end: 20090101
  2. CALCORT [Concomitant]
     Indication: RHEUMATOID ARTHRITIS
     Route: 048
  3. LOSARTAN POTASSIUM [Concomitant]
     Indication: HYPERTENSION
     Route: 048

REACTIONS (8)
  - ABASIA [None]
  - ARTERIAL OCCLUSIVE DISEASE [None]
  - DIABETES MELLITUS [None]
  - DYSPNOEA [None]
  - LIMB INJURY [None]
  - LUNG DISORDER [None]
  - NEURITIS [None]
  - VASCULITIS [None]
